FAERS Safety Report 8827902 (Version 1)
Quarter: 2012Q4

REPORT INFORMATION
  Report Type: 
  Country: BR (occurrence: BR)
  Receive Date: 20121005
  Receipt Date: 20121005
  Transmission Date: 20130627
  Serious: Yes (Other)
  Sender: FDA-Public Use
  Company Number: BR-AMGEN-BRASP2012016517

PATIENT
  Age: 65 Year
  Sex: Female
  Weight: 70 kg

DRUGS (12)
  1. ENBREL [Suspect]
     Indication: RHEUMATOID ARTHRITIS
     Dosage: 50 mg, weekly
     Route: 058
     Dates: start: 20110328, end: 201108
  2. ENBREL [Suspect]
     Dosage: 50 mg, weekly
     Route: 058
     Dates: start: 201109
  3. ARADOIS [Concomitant]
     Indication: BLOOD PRESSURE
     Dosage: UNK
  4. HYDROCHLOROTHIAZIDE [Concomitant]
     Indication: BLOOD PRESSURE
     Dosage: UNK
  5. SOMALGIN [Concomitant]
     Indication: ANTICOAGULANT THERAPY
     Dosage: UNK
  6. NIFEDIPINE [Concomitant]
     Indication: BLOOD PRESSURE
     Dosage: UNK
  7. INSULIN [Concomitant]
     Indication: DIABETES MELLITUS
     Dosage: UNK
  8. LEFLUNOMIDE [Concomitant]
     Indication: DIABETES MELLITUS
     Dosage: UNK
  9. INSULIN HUMAN [Concomitant]
     Indication: DIABETES MELLITUS
     Dosage: UNK
  10. ARAVA [Concomitant]
     Dosage: UNK
  11. SUSTRATE [Concomitant]
     Dosage: UNK
  12. ALGINAC [Concomitant]
     Dosage: UNK

REACTIONS (7)
  - Wrong technique in drug usage process [Recovered/Resolved]
  - Blister [Not Recovered/Not Resolved]
  - Inflammation [Not Recovered/Not Resolved]
  - Weight increased [Unknown]
  - Swelling face [Unknown]
  - Erythema [Unknown]
  - Injection site pain [Recovered/Resolved]
